FAERS Safety Report 9736069 (Version 2)
Quarter: 2014Q1

REPORT INFORMATION
  Report Type: Spontaneous
  Country: US (occurrence: US)
  Receive Date: 20131206
  Receipt Date: 20140210
  Transmission Date: 20141002
  Serious: Yes (Death, Hospitalization)
  Sender: FDA-Public Use
  Company Number: US-GLAXOSMITHKLINE-A1052372A

PATIENT
  Age: 77 Year
  Sex: Male

DRUGS (8)
  1. VOTRIENT [Suspect]
     Indication: PRODUCT USED FOR UNKNOWN INDICATION
     Dosage: 800MG PER DAY
     Route: 048
     Dates: start: 20131011, end: 201311
  2. ANALPRAM-HC [Concomitant]
  3. XARELTO [Concomitant]
  4. ALLOPURINOL [Concomitant]
  5. GEMFIBROZIL [Concomitant]
  6. PANTOPRAZOLE [Concomitant]
  7. EXFORGE [Concomitant]
  8. LOVAZA [Concomitant]

REACTIONS (5)
  - Renal cell carcinoma [Fatal]
  - Intestinal ischaemia [Fatal]
  - Renal failure acute [Unknown]
  - Abdominal pain [Unknown]
  - Hypotension [Unknown]
